FAERS Safety Report 10228542 (Version 1)
Quarter: 2014Q2

REPORT INFORMATION
  Report Type: Spontaneous
  Country: US (occurrence: US)
  Receive Date: 20140610
  Receipt Date: 20140610
  Transmission Date: 20141212
  Serious: No
  Sender: FDA-Public Use
  Company Number: US-ROXANE LABORATORIES, INC.-2014-RO-00914RO

PATIENT
  Age: 48 Year
  Sex: Female
  Weight: 87 kg

DRUGS (3)
  1. PREDNISONE [Suspect]
     Indication: PRODUCT USED FOR UNKNOWN INDICATION
     Route: 065
  2. ADVAIR [Concomitant]
     Indication: ASTHMA
     Route: 065
  3. MAXAIR [Concomitant]
     Indication: ASTHMA
     Route: 065

REACTIONS (1)
  - Tongue disorder [Unknown]
